FAERS Safety Report 25992754 (Version 1)
Quarter: 2025Q4

REPORT INFORMATION
  Report Type: Spontaneous
  Country: PR (occurrence: US)
  Receive Date: 20251103
  Receipt Date: 20251103
  Transmission Date: 20260118
  Serious: No
  Sender: BIOCRYST PHARMACEUTICALS
  Company Number: PR-BIOCRYST PHARMACEUTICALS, INC.-2025BCR01132

PATIENT

DRUGS (1)
  1. ORLADEYO [Suspect]
     Active Substance: BEROTRALSTAT HYDROCHLORIDE
     Indication: Hereditary angioedema

REACTIONS (1)
  - Gastritis [Recovered/Resolved]
